FAERS Safety Report 8331807-6 (Version None)
Quarter: 2012Q2

REPORT INFORMATION
  Report Type: 
  Country: None (occurrence: None)
  Receive Date: 20120502
  Receipt Date: 20120423
  Transmission Date: 20120825
  Serious: Yes (Other)
  Sender: FDA-Public Use
  Company Number: US-AMGEN-USASP2011045506

PATIENT
  Age: 60 Year
  Sex: Female

DRUGS (1)
  1. ENBREL [Suspect]
     Indication: RHEUMATOID ARTHRITIS
     Dosage: 50 MG, QWK
     Dates: start: 20110609

REACTIONS (7)
  - ASTHENIA [None]
  - PRURITUS [None]
  - DRUG HYPERSENSITIVITY [None]
  - CHILLS [None]
  - HYPERHIDROSIS [None]
  - DIARRHOEA [None]
  - ANIMAL BITE [None]
